FAERS Safety Report 23401578 (Version 1)
Quarter: 2024Q1

REPORT INFORMATION
  Report Type: Other
  Country: IT (occurrence: None)
  Receive Date: 20240115
  Receipt Date: 20240115
  Transmission Date: 20240410
  Serious: Yes (Other)
  Sender: FDA-Public Use
  Company Number: IT-ROCHE-3488397

PATIENT

DRUGS (2)
  1. RITUXIMAB [Suspect]
     Active Substance: RITUXIMAB
     Indication: Hairy cell leukaemia
     Route: 065
  2. VEMURAFENIB [Suspect]
     Active Substance: VEMURAFENIB
     Indication: Hairy cell leukaemia
     Route: 065

REACTIONS (32)
  - Neutropenia [Unknown]
  - Pyrexia [Unknown]
  - Infusion related reaction [Unknown]
  - Rash [Unknown]
  - Hyperbilirubinaemia [Unknown]
  - Arthralgia [Unknown]
  - Basal cell carcinoma [Unknown]
  - Headache [Unknown]
  - Leukoplakia [Unknown]
  - Hypophosphataemia [Unknown]
  - Asthenia [Unknown]
  - Fatigue [Unknown]
  - Lipase [Unknown]
  - Amylase increased [Unknown]
  - Herpes simplex reactivation [Unknown]
  - Gamma-glutamyltransferase increased [Unknown]
  - Aspartate aminotransferase increased [Unknown]
  - Hyperkeratosis [Unknown]
  - Nausea [Unknown]
  - Decreased appetite [Unknown]
  - Dyspepsia [Unknown]
  - Pain in extremity [Unknown]
  - Pain in extremity [Unknown]
  - Keratoacanthoma [Unknown]
  - Abdominal pain [Unknown]
  - Neutropenia [Unknown]
  - Alopecia [Unknown]
  - Erythema [Unknown]
  - Arthritis [Unknown]
  - Skin papilloma [Unknown]
  - Off label use [Unknown]
  - Off label use [Unknown]
